FAERS Safety Report 4803626-6 (Version None)
Quarter: 2005Q4

REPORT INFORMATION
  Report Type: 
  Country: None (occurrence: None)
  Receive Date: 20051014
  Receipt Date: 20050928
  Transmission Date: 20060501
  Serious: Yes (Other)
  Sender: FDA-Public Use
  Company Number: 2005EN000403

PATIENT
  Age: 38 Year
  Sex: Male

DRUGS (2)
  1. ABELCET [Suspect]
     Dosage: 1 MG/KG; QD
  2. ANTIBIOTICS [Concomitant]

REACTIONS (4)
  - NEPHROGENIC DIABETES INSIPIDUS [None]
  - NEUTROPENIA [None]
  - PYREXIA [None]
  - THERAPY NON-RESPONDER [None]
